FAERS Safety Report 9880514 (Version 1)
Quarter: 2014Q1

REPORT INFORMATION
  Report Type: Spontaneous
  Country: US (occurrence: None)
  Receive Date: 20140206
  Receipt Date: 20140206
  Transmission Date: 20141002
  Serious: Yes (Other)
  Sender: FDA-Public Use
  Company Number: None

PATIENT
  Age: 53 Year
  Sex: Male
  Weight: 108.86 kg

DRUGS (9)
  1. INTELENCE [Suspect]
     Indication: HIV INFECTION
     Route: 048
     Dates: start: 20110120
  2. EPZICON [Concomitant]
  3. INTELENCE [Concomitant]
  4. TOPROL [Concomitant]
  5. CRESTOR [Suspect]
  6. EFFIENT [Suspect]
  7. LYRICA [Suspect]
  8. TRICOR [Concomitant]
  9. ASPIRIN [Suspect]

REACTIONS (2)
  - Dysphagia [None]
  - Product physical issue [None]
